FAERS Safety Report 16618357 (Version 1)
Quarter: 2019Q3

REPORT INFORMATION
  Report Type: Spontaneous
  Country: DE (occurrence: DE)
  Receive Date: 20190723
  Receipt Date: 20190723
  Transmission Date: 20191004
  Serious: Yes (Hospitalization, Other)
  Sender: FDA-Public Use
  Company Number: DE-BAYER-2015-418905

PATIENT
  Age: 74 Year
  Sex: Female
  Weight: 103 kg

DRUGS (9)
  1. QUENSYL [Concomitant]
     Active Substance: HYDROXYCHLOROQUINE
  2. GADOVIST [Suspect]
     Active Substance: GADOBUTROL
     Indication: NUCLEAR MAGNETIC RESONANCE IMAGING HEART
     Dosage: 0.15 MMOL/KG (15 ML), UNK
     Dates: start: 20150903, end: 20150903
  3. ACETYLSALICYLIC ACID [Concomitant]
     Active Substance: ASPIRIN
  4. AMLODIPIN 1 A PHARMA [Concomitant]
     Active Substance: AMLODIPINE BESYLATE
  5. SIMVASTATIN. [Concomitant]
     Active Substance: SIMVASTATIN
  6. BELOC [ATENOLOL] [Concomitant]
     Active Substance: ATENOLOL
  7. TICAGRELOR. [Concomitant]
     Active Substance: TICAGRELOR
  8. TOREM [TORASEMIDE] [Concomitant]
     Active Substance: TORSEMIDE
  9. SPIRONOLACTON [Concomitant]
     Active Substance: SPIRONOLACTONE

REACTIONS (1)
  - Acute kidney injury [None]
